FAERS Safety Report 8088079 (Version 3)
Quarter: 2012Q4

REPORT INFORMATION
  Report Type: 
  Country: US (occurrence: US)
  Receive Date: 20110812
  Receipt Date: 20120925
  Transmission Date: 20130627
  Serious: Yes (Hospitalization)
  Sender: FDA-Public Use
  Company Number: US-BAYER-2011-070824

PATIENT
  Age: 24 Year
  Sex: Female
  Weight: 68 kg

DRUGS (7)
  1. YAZ [Suspect]
     Indication: CONTRACEPTION
     Route: 048
     Dates: start: 200803, end: 20080801
  2. YAZ [Suspect]
     Indication: ACNE
     Dosage: UNK
     Route: 048
     Dates: start: 20080519, end: 20080801
  3. YAZ [Suspect]
     Indication: PREMENSTRUAL SYNDROME
  4. YAZ [Suspect]
     Indication: MENSTRUATION IRREGULAR
  5. ASCORBIC ACID [Concomitant]
     Dosage: UNK
     Dates: start: 2001
  6. PERCOCET [Concomitant]
     Indication: PAIN
     Dosage: 5/325
  7. MOTRIN [Concomitant]
     Dosage: 600

REACTIONS (7)
  - Pulmonary embolism [Recovered/Resolved]
  - Pulmonary infarction [None]
  - Pain [None]
  - Chest pain [Recovered/Resolved]
  - Dyspnoea [Recovered/Resolved]
  - Dyspnoea exertional [None]
  - Anxiety [None]
